FAERS Safety Report 16265379 (Version 1)
Quarter: 2019Q2

REPORT INFORMATION
  Report Type: Spontaneous
  Country: ZA (occurrence: ZA)
  Receive Date: 20190502
  Receipt Date: 20190502
  Transmission Date: 20190711
  Serious: Yes (Life-Threatening, Hospitalization)
  Sender: FDA-Public Use
  Company Number: ZA-BAYER-2019-083315

PATIENT
  Sex: Female

DRUGS (2)
  1. MIRENA [Suspect]
     Active Substance: LEVONORGESTREL
     Indication: CONTRACEPTION
     Dosage: 20 MCG/24HR, CONT
     Route: 015
  2. MIRENA [Suspect]
     Active Substance: LEVONORGESTREL

REACTIONS (17)
  - Ectopic pregnancy with contraceptive device [None]
  - Genito-pelvic pain/penetration disorder [None]
  - Drug ineffective [None]
  - Septic shock [None]
  - Hyperhidrosis [None]
  - Breast swelling [None]
  - Vomiting [None]
  - Hypotension [None]
  - Nausea [None]
  - Vulvovaginal pain [None]
  - Peritoneal haemorrhage [None]
  - Abdominal pain [None]
  - Ruptured ectopic pregnancy [None]
  - Pain [None]
  - Uterine cervical pain [None]
  - Breast tenderness [None]
  - Fatigue [None]
